FAERS Safety Report 14340667 (Version 3)
Quarter: 2018Q3

REPORT INFORMATION
  Report Type: Report from Study
  Country: None (occurrence: IL)
  Receive Date: 20180101
  Receipt Date: 20180901
  Transmission Date: 20181010
  Serious: Yes (Hospitalization)
  Sender: FDA-Public Use
  Company Number: IL-ABBVIE-18K-082-2208888-00

PATIENT
  Age: 70 Year
  Sex: Male

DRUGS (2)
  1. DUODOPA [Suspect]
     Active Substance: CARBIDOPA\LEVODOPA
     Indication: PARKINSON^S DISEASE
     Dosage: CURRENT MD 10ML, CURRENT CD 3ML/HOUR, CURRENT ED 1ML.
     Route: 050
     Dates: start: 20171129, end: 20171230
  2. DUODOPA [Suspect]
     Active Substance: CARBIDOPA\LEVODOPA
     Dosage: DOSE INCREASED
     Route: 050

REACTIONS (7)
  - Clostridial sepsis [Recovered/Resolved]
  - Device occlusion [Not Recovered/Not Resolved]
  - Device breakage [Not Recovered/Not Resolved]
  - Blood pressure decreased [Recovering/Resolving]
  - Pyrexia [Not Recovered/Not Resolved]
  - Device related infection [Not Recovered/Not Resolved]
  - On and off phenomenon [Not Recovered/Not Resolved]

NARRATIVE: CASE EVENT DATE: 2017
